FAERS Safety Report 8119531-6 (Version None)
Quarter: 2012Q1

REPORT INFORMATION
  Report Type: 
  Country: None (occurrence: None)
  Receive Date: 20120207
  Receipt Date: 20120124
  Transmission Date: 20120608
  Serious: Yes (Other)
  Sender: FDA-Public Use
  Company Number: PHEH2006US02616

PATIENT
  Sex: Female

DRUGS (10)
  1. LOMOTIL [Suspect]
     Indication: DIARRHOEA
     Dosage: UNK
  2. SANDOSTATIN [Suspect]
     Dosage: 25 MG, UNK
  3. GENGRAF [Concomitant]
     Dosage: 100 MG, BID
  4. SANDOSTATIN LAR [Suspect]
     Dosage: 30 MG EVERY 25 DAYS
     Dates: start: 20040101
  5. MYCOPHENOLATE MOFETIL (CELLCEPT) [Concomitant]
     Dosage: 500 MG, BID
  6. SANDOSTATIN [Suspect]
     Dosage: 50 MG, TID
  7. IMODIUM [Suspect]
     Indication: DIARRHOEA
     Dosage: UNK
  8. SANDOSTATIN [Suspect]
     Dosage: 50 MG, BID
  9. PAMELOR [Suspect]
     Indication: DIARRHOEA
     Dosage: UNK
  10. CLONIDINE [Suspect]
     Indication: DIARRHOEA
     Dosage: UNK

REACTIONS (2)
  - BLINDNESS [None]
  - DIARRHOEA [None]
